FAERS Safety Report 9236394 (Version 2)
Quarter: 2013Q3

REPORT INFORMATION
  Report Type: Report from Study
  Country: US (occurrence: US)
  Receive Date: 20130417
  Receipt Date: 20130816
  Transmission Date: 20140515
  Serious: Yes (Death, Hospitalization)
  Sender: FDA-Public Use
  Company Number: US-PFIZER INC-2013116350

PATIENT
  Age: 69 Year
  Sex: Male
  Weight: 82.6 kg

DRUGS (4)
  1. BLINDED CELECOXIB [Suspect]
     Indication: NON-SMALL CELL LUNG CANCER
     Dosage: 400 MG, 2X/DAY FROM DAYS 1 TO 21
     Route: 048
     Dates: start: 20121123, end: 20121224
  2. BLINDED PLACEBO [Suspect]
     Indication: NON-SMALL CELL LUNG CANCER
     Dosage: 400 MG, 2X/DAY FROM DAYS 1 TO 21
     Route: 048
     Dates: start: 20121123, end: 20121224
  3. CARBOPLATIN [Suspect]
     Indication: NON-SMALL CELL LUNG CANCER
     Dosage: AUC 6.0 ON DAY 1
     Route: 042
     Dates: start: 20121109, end: 20121221
  4. ALIMTA [Suspect]
     Indication: NON-SMALL CELL LUNG CANCER
     Dosage: 500 MG/M2, ON DAY 1
     Route: 042
     Dates: start: 20121109, end: 20121221

REACTIONS (4)
  - Lower gastrointestinal haemorrhage [Fatal]
  - Hypotension [Fatal]
  - Anaemia [Fatal]
  - Syncope [Unknown]
